FAERS Safety Report 8462440 (Version 5)
Quarter: 2013Q2

REPORT INFORMATION
  Report Type: Spontaneous
  Country: US (occurrence: US)
  Receive Date: 20120316
  Receipt Date: 20130614
  Transmission Date: 20140414
  Serious: Yes (Other)
  Sender: FDA-Public Use
  Company Number: US-PFIZER INC-2012066608

PATIENT
  Age: 73 Year
  Sex: Female
  Weight: 48.07 kg

DRUGS (5)
  1. PREMARIN [Suspect]
     Indication: UTERINE CANCER
     Dosage: 0.3 MG, 1X/DAY
     Route: 048
     Dates: start: 1968, end: 201203
  2. PREMARIN [Suspect]
     Indication: NEOPLASM MALIGNANT
     Dosage: UNK
     Route: 048
     Dates: end: 201301
  3. PREMARIN [Suspect]
     Indication: ROUTINE HEALTH MAINTENANCE
  4. PREMARIN [Suspect]
     Indication: NEOPLASM MALIGNANT
     Dosage: UNK, WEEKLY
     Route: 067
  5. PREMARIN [Suspect]
     Indication: ROUTINE HEALTH MAINTENANCE
     Dosage: UNK
     Route: 067

REACTIONS (23)
  - Urinary tract infection [Not Recovered/Not Resolved]
  - Pollakiuria [Not Recovered/Not Resolved]
  - Dysuria [Unknown]
  - Uterine inflammation [Not Recovered/Not Resolved]
  - Vaginal inflammation [Not Recovered/Not Resolved]
  - Arthritis [Unknown]
  - Arthritis [Unknown]
  - Arthritis [Unknown]
  - Headache [Unknown]
  - Head discomfort [Not Recovered/Not Resolved]
  - Pruritus [Not Recovered/Not Resolved]
  - Tension headache [Unknown]
  - Muscle tightness [Unknown]
  - Fatigue [Not Recovered/Not Resolved]
  - Discomfort [Unknown]
  - Hearing impaired [Unknown]
  - Breast pain [Not Recovered/Not Resolved]
  - Hangover [Not Recovered/Not Resolved]
  - Asthenia [Not Recovered/Not Resolved]
  - Restlessness [Not Recovered/Not Resolved]
  - Feeling cold [Not Recovered/Not Resolved]
  - Nasopharyngitis [Not Recovered/Not Resolved]
  - Malaise [Unknown]
